FAERS Safety Report 20660029 (Version 1)
Quarter: 2022Q1

REPORT INFORMATION
  Report Type: Spontaneous
  Country: US (occurrence: US)
  Receive Date: 20220331
  Receipt Date: 20220331
  Transmission Date: 20220424
  Serious: No
  Sender: FDA-Public Use
  Company Number: US-PFIZER INC-202101070887

PATIENT
  Age: 61 Year
  Sex: Female
  Weight: 76.2 kg

DRUGS (2)
  1. PREMARIN [Suspect]
     Active Substance: ESTROGENS, CONJUGATED
     Indication: Vulvovaginal dryness
     Dosage: NDC NUMBER: 0046-0872-21
  2. PREMARIN [Suspect]
     Active Substance: ESTROGENS, CONJUGATED
     Indication: Vulvovaginal discomfort
     Dosage: ONLY ONCE INSTEAD OF TWICE

REACTIONS (2)
  - Visual impairment [Unknown]
  - Intentional product misuse [Unknown]
